FAERS Safety Report 20327280 (Version 2)
Quarter: 2022Q1

REPORT INFORMATION
  Report Type: Report from Study
  Country: AR (occurrence: None)
  Receive Date: 20220112
  Receipt Date: 20220121
  Transmission Date: 20220424
  Serious: Yes (Life-Threatening, Hospitalization, Other)
  Sender: FDA-Public Use
  Company Number: AR-Merck Healthcare KGaA-9292365

PATIENT
  Age: 20 Year
  Sex: Female

DRUGS (8)
  1. MAVENCLAD [Suspect]
     Active Substance: CLADRIBINE
     Indication: Relapsing-remitting multiple sclerosis
     Dosage: YEAR ONE MONTH ONE THERAPY: TWO TABLETS ON DAY 1 AND ONE TABLET ON DAYS 2 TO 5
     Route: 048
     Dates: start: 20190624, end: 20190628
  2. MAVENCLAD [Suspect]
     Active Substance: CLADRIBINE
     Dosage: YEAR ONE MONTH TWO THERAPY: TWO TABLETS ON DAY 1 AND ONE TABLET ON DAYS 2 TO 5
     Route: 048
     Dates: start: 20190722, end: 20190726
  3. MAVENCLAD [Suspect]
     Active Substance: CLADRIBINE
     Dosage: YEAR TWO MONTH ONE THERAPY:5 TABLETS WHICH WAS ADMINISTERED BY GASTRIC BUTTON
     Route: 048
     Dates: start: 20200713, end: 20200717
  4. MAVENCLAD [Suspect]
     Active Substance: CLADRIBINE
     Dosage: YEAR TWO MONTH TWO THERAPY:5 TABLETS WHICH WAS ADMINISTERED BY GASTRIC BUTTON
     Route: 048
     Dates: start: 20200813, end: 20200817
  5. BENSERAZIDE HYDROCHLORIDE\LEVODOPA [Concomitant]
     Active Substance: BENSERAZIDE HYDROCHLORIDE\LEVODOPA
     Indication: Product used for unknown indication
     Dosage: 1/2 TABLET MORNING NOON AND AFTERNOON
  6. TOFLUX [Concomitant]
     Indication: Product used for unknown indication
     Dosage: AFTER TRACHEOSTOMY TOFLUX 600 WHEN REQUIRED IT FOR PERIODS OF THREE DAYS
  7. CARBAMAZEPINE [Concomitant]
     Active Substance: CARBAMAZEPINE
     Indication: Product used for unknown indication
  8. GABAPENTIN [Concomitant]
     Active Substance: GABAPENTIN
     Indication: Product used for unknown indication

REACTIONS (4)
  - Respiratory failure [Not Recovered/Not Resolved]
  - Areflexia [Not Recovered/Not Resolved]
  - Aspiration [Not Recovered/Not Resolved]
  - Neuromyopathy [Unknown]

NARRATIVE: CASE EVENT DATE: 20210101
